FAERS Safety Report 4883580-1 (Version None)
Quarter: 2006Q1

REPORT INFORMATION
  Report Type: 
  Country: None (occurrence: None)
  Receive Date: 20060118
  Receipt Date: 20050810
  Transmission Date: 20060701
  Serious: Yes (Hospitalization)
  Sender: FDA-Public Use
  Company Number: US-MERCK-0508USA01973

PATIENT
  Age: 73 Year
  Sex: Male
  Weight: 84 kg

DRUGS (14)
  1. VIOXX [Suspect]
     Indication: PAIN
     Route: 048
     Dates: start: 20040101, end: 20040901
  2. WARFARIN [Concomitant]
     Route: 065
  3. HYDROCODONE BITARTRATE [Concomitant]
     Route: 065
  4. GEMFIBROZIL [Concomitant]
     Route: 065
  5. TEMAZEPAM [Concomitant]
     Route: 065
  6. PROPRANOLOL HYDROCHLORIDE [Concomitant]
     Route: 065
  7. TRIAMTERENE [Concomitant]
     Route: 065
  8. LIPITOR [Concomitant]
     Route: 065
  9. DIGITEK [Concomitant]
     Route: 065
  10. RESTORIL [Concomitant]
     Route: 065
  11. CLARINEX [Concomitant]
     Route: 065
  12. VICODIN [Concomitant]
     Route: 065
  13. DIGOXIN [Concomitant]
     Route: 065
  14. ACCUPRIL [Concomitant]
     Route: 065

REACTIONS (5)
  - COMA [None]
  - HYPERTENSION [None]
  - MYOCARDIAL INFARCTION [None]
  - SYNCOPE [None]
  - VENTRICULAR TACHYCARDIA [None]
